FAERS Safety Report 11471884 (Version 2)
Quarter: 2015Q3

REPORT INFORMATION
  Report Type: Spontaneous
  Country: BR (occurrence: BR)
  Receive Date: 20150908
  Receipt Date: 20150916
  Transmission Date: 20151125
  Serious: Yes (Hospitalization, Other)
  Sender: FDA-Public Use
  Company Number: BR-DSJP-DSU-2015-127902

PATIENT

DRUGS (2)
  1. ABLOK [Concomitant]
     Active Substance: ATENOLOL
     Indication: HYPERTENSION
     Dosage: UNK
  2. OLMETEC HCT 20/12.5 [Suspect]
     Active Substance: HYDROCHLOROTHIAZIDE\OLMESARTAN MEDOXOMIL
     Indication: HYPERTENSION
     Dosage: 20/12.5 MG, ONCE EVERY 12HR
     Route: 048

REACTIONS (1)
  - Pneumonia [Unknown]
